FAERS Safety Report 4852440-4 (Version None)
Quarter: 2005Q4

REPORT INFORMATION
  Report Type: 
  Country: None (occurrence: None)
  Receive Date: 20051130
  Receipt Date: 20050901
  Transmission Date: 20060501
  Serious: No
  Sender: FDA-Public Use
  Company Number: WAES 0506USA03821

PATIENT
  Sex: Female

DRUGS (2)
  1. ZETIA [Suspect]
     Dosage: PO
     Route: 048
  2. NIACIN [Concomitant]

REACTIONS (3)
  - FEELING ABNORMAL [None]
  - NAUSEA [None]
  - RESTLESSNESS [None]
